FAERS Safety Report 18469488 (Version 6)
Quarter: 2021Q1

REPORT INFORMATION
  Report Type: Report from Study
  Country: LB (occurrence: LB)
  Receive Date: 20201105
  Receipt Date: 20210225
  Transmission Date: 20210419
  Serious: Yes (Hospitalization, Other)
  Sender: FDA-Public Use
  Company Number: NVSC2020LB295511

PATIENT
  Age: 54 Year
  Sex: Female
  Weight: 80 kg

DRUGS (3)
  1. OXYGEN. [Concomitant]
     Active Substance: OXYGEN
     Indication: PRODUCT USED FOR UNKNOWN INDICATION
     Dosage: 2 L NC
     Route: 065
  2. TASIGNA [Suspect]
     Active Substance: NILOTINIB
     Indication: CHRONIC MYELOID LEUKAEMIA
     Dosage: 150 OT
     Route: 048
     Dates: start: 20190902
  3. EUTHYROX [Concomitant]
     Active Substance: LEVOTHYROXINE SODIUM
     Indication: PRODUCT USED FOR UNKNOWN INDICATION
     Route: 065

REACTIONS (15)
  - COVID-19 [Recovering/Resolving]
  - Ageusia [Unknown]
  - Fatigue [Recovered/Resolved]
  - Asthenia [Unknown]
  - Muscle spasms [Recovered/Resolved]
  - Fatigue [Recovering/Resolving]
  - Night sweats [Recovering/Resolving]
  - Anosmia [Unknown]
  - Hypertension [Recovered/Resolved]
  - Decreased appetite [Unknown]
  - Withdrawal syndrome [Recovered/Resolved]
  - Dyspnoea [Unknown]
  - Back pain [Recovered/Resolved]
  - Bone pain [Recovered/Resolved]
  - Product dose omission issue [Unknown]

NARRATIVE: CASE EVENT DATE: 20201213
